FAERS Safety Report 8449105-9 (Version None)
Quarter: 2012Q2

REPORT INFORMATION
  Report Type: 
  Country: None (occurrence: None)
  Receive Date: 20120619
  Receipt Date: 20120604
  Transmission Date: 20120825
  Serious: Yes (Death, Hospitalization)
  Sender: FDA-Public Use
  Company Number: IT-INCYTE CORPORATION-2012IN000945

PATIENT
  Sex: Female
  Weight: 50 kg

DRUGS (3)
  1. INC424 [Suspect]
     Dosage: 15 MG, BID
     Route: 065
     Dates: start: 20120423, end: 20120508
  2. INC424 [Suspect]
     Indication: MYELOFIBROSIS
     Dosage: UNK
     Dates: end: 20120422
  3. INC424 [Suspect]
     Dosage: 5 MG, BID
     Route: 048
     Dates: start: 20120509, end: 20120521

REACTIONS (10)
  - THROMBOCYTOPENIA [None]
  - RENAL IMPAIRMENT [None]
  - ACUTE LEUKAEMIA [None]
  - OEDEMA [None]
  - LEUKOCYTOSIS [None]
  - MYELOFIBROSIS [None]
  - CARDIAC FAILURE [None]
  - HAEMOGLOBIN DECREASED [None]
  - HYPOTENSION [None]
  - DISEASE PROGRESSION [None]
